FAERS Safety Report 8289077-3 (Version None)
Quarter: 2012Q2

REPORT INFORMATION
  Report Type: 
  Country: None (occurrence: None)
  Receive Date: 20120417
  Receipt Date: 20120410
  Transmission Date: 20120825
  Serious: Yes (Other)
  Sender: FDA-Public Use
  Company Number: SE-BAYER-2012-034299

PATIENT
  Sex: Female

DRUGS (1)
  1. ESTRADIOL VALERATE/DIENOGEST [Suspect]
     Indication: ORAL CONTRACEPTION
     Dosage: UNK

REACTIONS (4)
  - URINARY TRACT INFECTION [None]
  - ABDOMINAL DISCOMFORT [None]
  - DYSURIA [None]
  - DYSPAREUNIA [None]
